FAERS Safety Report 8348671-1 (Version None)
Quarter: 2012Q2

REPORT INFORMATION
  Report Type: 
  Country: None (occurrence: None)
  Receive Date: 20120510
  Receipt Date: 20120427
  Transmission Date: 20120825
  Serious: Yes (Hospitalization, Other)
  Sender: FDA-Public Use
  Company Number: US-ELI_LILLY_AND_COMPANY-US201202002721

PATIENT
  Sex: Female
  Weight: 61.22 kg

DRUGS (2)
  1. FORTEO [Suspect]
     Indication: OSTEOPOROSIS
     Dosage: 20 UG, QD
  2. FORTEO [Suspect]
     Dosage: 20 UG, QD
     Route: 065

REACTIONS (7)
  - BLOOD PRESSURE INCREASED [None]
  - ARTHRALGIA [None]
  - VERTEBROPLASTY [None]
  - BREAST CANCER RECURRENT [None]
  - HOSPITALISATION [None]
  - PAIN IN EXTREMITY [None]
  - PAIN [None]
